FAERS Safety Report 6521208-5 (Version None)
Quarter: 2009Q4

REPORT INFORMATION
  Report Type: 
  Country: None (occurrence: None)
  Receive Date: 20091222
  Receipt Date: 20091210
  Transmission Date: 20100525
  Serious: Yes (Death)
  Sender: FDA-Public Use
  Company Number: KV200900604

PATIENT
  Age: 62 Year
  Sex: Female
  Weight: 104.3 kg

DRUGS (15)
  1. MORPHINE SULFATE [Suspect]
     Indication: DRUG USE FOR UNKNOWN INDICATION
     Dosage: 15 MG, ORAL
     Route: 048
     Dates: start: 20080716, end: 20080719
  2. MORPHINE SULFATE INJ [Concomitant]
  3. CLONAZEPAM [Concomitant]
  4. DESIPRAMINE HCL [Concomitant]
  5. GEMFIBROZIL [Concomitant]
  6. OMEPRAZOLE [Concomitant]
  7. FLEXERIL /00428402/ (CYCLOBENZAPRINE HYDROCHLORIDE) [Concomitant]
  8. DECADRON [Concomitant]
  9. COLACE (DOCUSATE SODIUM) [Concomitant]
  10. EFFEXOR /01233801/ (VENLAFAXINE) [Concomitant]
  11. SYNTHROID [Concomitant]
  12. COLYTE	/00751601/ (MACROGOL, POTASSIUM CHLORIDE, SODIUM BICARBONATE, S [Concomitant]
  13. TYLENOL	 /00020001/ (PARACETAMOL) [Concomitant]
  14. GABAPENTIN [Concomitant]
  15. LORTAB	/00607101/ (HYDROCODONE BITARTRATE, PARACETAMOL) [Concomitant]

REACTIONS (13)
  - ABDOMINAL PAIN [None]
  - ACTIVITIES OF DAILY LIVING IMPAIRED [None]
  - ANXIETY [None]
  - ARTHRALGIA [None]
  - CARDIAC ARREST [None]
  - CONFUSIONAL STATE [None]
  - EMOTIONAL DISTRESS [None]
  - FEAR [None]
  - HYPERHIDROSIS [None]
  - NAUSEA [None]
  - NECK PAIN [None]
  - PAIN IN EXTREMITY [None]
  - SHOCK [None]
